FAERS Safety Report 8238095-X (Version None)
Quarter: 2012Q1

REPORT INFORMATION
  Report Type: 
  Country: None (occurrence: None)
  Receive Date: 20120327
  Receipt Date: 20120321
  Transmission Date: 20120608
  Serious: Yes (Other)
  Sender: FDA-Public Use
  Company Number: JP-GLAXOSMITHKLINE-B0790902A

PATIENT
  Sex: Female
  Weight: 44 kg

DRUGS (3)
  1. TYKERB [Suspect]
     Indication: BREAST CANCER
     Dosage: 1250MG PER DAY
     Route: 048
     Dates: start: 20100730, end: 20101013
  2. XELODA [Concomitant]
     Dosage: 2400MG PER DAY
     Route: 048
     Dates: start: 20100730, end: 20100806
  3. XELODA [Concomitant]
     Dosage: 1800MG PER DAY
     Route: 048
     Dates: start: 20100827, end: 20101013

REACTIONS (1)
  - PERFORMANCE STATUS DECREASED [None]
